FAERS Safety Report 8463397-1 (Version None)
Quarter: 2012Q2

REPORT INFORMATION
  Report Type: 
  Country: None (occurrence: None)
  Receive Date: 20120625
  Receipt Date: 20120613
  Transmission Date: 20120825
  Serious: Yes (Disabling, Other)
  Sender: FDA-Public Use
  Company Number: US-MERCK-1103USA03954

PATIENT
  Age: 63 Year
  Sex: Female
  Weight: 59 kg

DRUGS (6)
  1. FOSAMAX PLUS D [Suspect]
     Indication: OSTEOPOROSIS
     Route: 048
     Dates: start: 20010901, end: 20100901
  2. BONIVA [Concomitant]
     Indication: OSTEOPOROSIS
     Route: 065
     Dates: start: 20080901
  3. VITAMIN D (UNSPECIFIED) [Concomitant]
     Indication: OSTEOPOROSIS
     Route: 065
  4. ALENDRONATE SODIUM [Suspect]
     Indication: OSTEOPOROSIS
     Route: 065
     Dates: start: 20080701, end: 20100801
  5. FOSAMAX [Suspect]
     Indication: OSTEOPOROSIS
     Route: 048
     Dates: start: 20010901, end: 20100901
  6. CALCIUM (UNSPECIFIED) [Concomitant]
     Indication: OSTEOPOROSIS
     Route: 065

REACTIONS (32)
  - BACK PAIN [None]
  - PERONEAL NERVE PALSY [None]
  - LUMBAR SPINAL STENOSIS [None]
  - NEOPLASM [None]
  - FALL [None]
  - RADIUS FRACTURE [None]
  - FOOT DEFORMITY [None]
  - GASTROOESOPHAGEAL REFLUX DISEASE [None]
  - PARAESTHESIA [None]
  - ONYCHOMYCOSIS [None]
  - PAIN IN EXTREMITY [None]
  - NEPHROLITHIASIS [None]
  - FEMUR FRACTURE [None]
  - INTERVERTEBRAL DISC SPACE NARROWING [None]
  - MUSCULAR WEAKNESS [None]
  - SCAR [None]
  - ADVERSE DRUG REACTION [None]
  - INTERVERTEBRAL DISC DEGENERATION [None]
  - URINARY TRACT INFECTION [None]
  - SPINAL COMPRESSION FRACTURE [None]
  - OEDEMA PERIPHERAL [None]
  - BUNION [None]
  - HYPERKERATOSIS [None]
  - ESSENTIAL HYPERTENSION [None]
  - NAUSEA [None]
  - HYPERTROPHY [None]
  - INTERVERTEBRAL DISC PROTRUSION [None]
  - ARTHRALGIA [None]
  - DRUG HYPERSENSITIVITY [None]
  - CYSTITIS [None]
  - VISUAL IMPAIRMENT [None]
  - HAEMATURIA [None]
